FAERS Safety Report 6408809-X (Version None)
Quarter: 2009Q4

REPORT INFORMATION
  Report Type: 
  Country: None (occurrence: None)
  Receive Date: 20091021
  Receipt Date: 20091015
  Transmission Date: 20100525
  Serious: Yes (Other)
  Sender: FDA-Public Use
  Company Number: B0597999A

PATIENT
  Sex: Female

DRUGS (1)
  1. FLUTIDE [Suspect]
     Indication: DRUG USE FOR UNKNOWN INDICATION
     Route: 055
     Dates: start: 20090926

REACTIONS (2)
  - ASTHMA [None]
  - DEVICE FAILURE [None]
